FAERS Safety Report 9749033 (Version 2)
Quarter: 2013Q4

REPORT INFORMATION
  Report Type: Spontaneous
  Country: US (occurrence: US)
  Receive Date: 20131212
  Receipt Date: 20131212
  Transmission Date: 20140711
  Serious: Yes (Hospitalization, Other)
  Sender: FDA-Public Use
  Company Number: US-INCYTE CORPORATION-2013IN001252

PATIENT
  Age: 69 Year
  Sex: Female

DRUGS (11)
  1. JAKAFI [Suspect]
     Indication: MYELOFIBROSIS
     Dosage: 10 MG, BID
     Route: 048
     Dates: start: 20130523, end: 201308
  2. FERROUS SULFATE [Concomitant]
  3. CALCIUM [Concomitant]
  4. VITAMIN D [Concomitant]
  5. FORTEO [Concomitant]
  6. DILTIAZEM [Concomitant]
  7. CORGARD [Concomitant]
  8. PRAVASTATIN [Concomitant]
  9. PEPCID [Concomitant]
  10. LEVOTHYROXINE [Concomitant]
  11. FELODIPINE [Concomitant]

REACTIONS (7)
  - Anaemia [Unknown]
  - Platelet count decreased [Unknown]
  - Blood bilirubin increased [Unknown]
  - Diarrhoea [Unknown]
  - Flatulence [Unknown]
  - Fatigue [Unknown]
  - Dizziness [Not Recovered/Not Resolved]
